FAERS Safety Report 11279764 (Version 2)
Quarter: 2015Q3

REPORT INFORMATION
  Report Type: Report from Study
  Country: AT (occurrence: AT)
  Receive Date: 20150717
  Receipt Date: 20150730
  Transmission Date: 20151125
  Serious: Yes (Hospitalization)
  Sender: FDA-Public Use
  Company Number: PHHY2013AT002602

PATIENT
  Age: 73 Year
  Sex: Male

DRUGS (4)
  1. AFINITOR [Suspect]
     Active Substance: EVEROLIMUS
     Dosage: 5 MG, UNK
     Route: 065
     Dates: start: 201110
  2. AFINITOR [Suspect]
     Active Substance: EVEROLIMUS
     Dosage: 5 MG, QD
     Route: 065
     Dates: start: 201302, end: 201305
  3. AFINITOR [Suspect]
     Active Substance: EVEROLIMUS
     Indication: RENAL CELL CARCINOMA
     Dosage: 10 MG, QD
     Route: 065
     Dates: start: 20110401
  4. SORAFENIB [Suspect]
     Active Substance: SORAFENIB
     Indication: RENAL CELL CARCINOMA
     Dosage: 400 MG, BID
     Route: 065

REACTIONS (21)
  - Pain [Unknown]
  - Pneumonitis [Unknown]
  - Abdominal pain [Unknown]
  - Mucosal erosion [Unknown]
  - Skin disorder [Unknown]
  - Quality of life decreased [Unknown]
  - Dyspnoea exertional [Unknown]
  - Malignant neoplasm progression [Unknown]
  - Lymphopenia [Unknown]
  - Cough [Unknown]
  - Metastases to retroperitoneum [Unknown]
  - Benign prostatic hyperplasia [Unknown]
  - Lung infiltration [Unknown]
  - General physical health deterioration [Unknown]
  - Chest discomfort [Unknown]
  - Mucosal inflammation [Unknown]
  - Metastases to lymph nodes [Unknown]
  - Blood pressure increased [Unknown]
  - Discomfort [Recovered/Resolved]
  - Osteoarthritis [Unknown]
  - Stomatitis [Unknown]

NARRATIVE: CASE EVENT DATE: 20120926
